FAERS Safety Report 11348795 (Version 1)
Quarter: 2015Q3

REPORT INFORMATION
  Report Type: Spontaneous
  Country: NL (occurrence: NL)
  Receive Date: 20150806
  Receipt Date: 20150806
  Transmission Date: 20151125
  Serious: Yes (Hospitalization)
  Sender: FDA-Public Use
  Company Number: NL-009507513-1502NLD001788

PATIENT
  Age: 43 Year
  Sex: Female

DRUGS (1)
  1. NUVARING [Suspect]
     Active Substance: ETHINYL ESTRADIOL\ETONOGESTREL
     Dosage: UNK
     Route: 067
     Dates: start: 201412

REACTIONS (10)
  - Tonsillar disorder [Unknown]
  - Feeding disorder [Unknown]
  - Depressed mood [Not Recovered/Not Resolved]
  - Metrorrhagia [Unknown]
  - Medical device discomfort [Not Recovered/Not Resolved]
  - Vomiting [Unknown]
  - Skin discomfort [Not Recovered/Not Resolved]
  - Pain [Unknown]
  - Malaise [Unknown]
  - Incorrect drug administration duration [Unknown]

NARRATIVE: CASE EVENT DATE: 201412
